FAERS Safety Report 23051507 (Version 2)
Quarter: 2023Q4

REPORT INFORMATION
  Report Type: Report from Study
  Country: US (occurrence: US)
  Receive Date: 20231010
  Receipt Date: 20231227
  Transmission Date: 20240109
  Serious: Yes (Hospitalization, Other)
  Sender: FDA-Public Use
  Company Number: US-SANDOZ-SDZ2023US022596

PATIENT
  Sex: Female
  Weight: 77.27 kg

DRUGS (5)
  1. TREPROSTINIL [Suspect]
     Active Substance: TREPROSTINIL
     Dosage: 16 NG/KG/ MIN CONT
     Route: 058
     Dates: start: 20210707
  2. TREPROSTINIL [Suspect]
     Active Substance: TREPROSTINIL
     Indication: Pulmonary arterial hypertension
     Dosage: UNK, CONT
     Route: 058
     Dates: start: 20210707
  3. TREPROSTINIL [Suspect]
     Active Substance: TREPROSTINIL
     Dosage: UNK, CONT,12NG/KG/ MIN
     Route: 058
     Dates: start: 20210707
  4. ADEMPAS [Concomitant]
     Active Substance: RIOCIGUAT
     Indication: Product used for unknown indication
     Dosage: UNK
     Route: 065
  5. OPSUMIT [Concomitant]
     Active Substance: MACITENTAN
     Indication: Product used for unknown indication
     Dosage: UNK
     Route: 065

REACTIONS (7)
  - Generalised tonic-clonic seizure [Unknown]
  - Neoplasm malignant [Unknown]
  - Oxygen saturation decreased [Unknown]
  - Hypotension [Unknown]
  - Mental disorder [Unknown]
  - Dementia [Unknown]
  - Accidental exposure to product [Unknown]
